FAERS Safety Report 6596516-2 (Version None)
Quarter: 2010Q1

REPORT INFORMATION
  Report Type: 
  Country: None (occurrence: None)
  Receive Date: 20100222
  Receipt Date: 20100222
  Transmission Date: 20100710
  Serious: Yes (Death, Hospitalization)
  Sender: FDA-Public Use
  Company Number: None

PATIENT
  Age: 67 Year
  Weight: 64.2 kg

DRUGS (9)
  1. VANDETANIB (ZD6474) - ZACTIMA [Suspect]
     Indication: GLIOBLASTOMA MULTIFORME
     Dosage: ZD 300 MG ONCE DAILY, PO
     Route: 048
     Dates: start: 20091211, end: 20100126
  2. CARBOPLATIN [Concomitant]
     Indication: GLIOBLASTOMA MULTIFORME
     Dosage: 488 MQ IV Q4 WEEKS
     Route: 042
     Dates: start: 20091211, end: 20100108
  3. KEPPRA [Concomitant]
  4. PLAVIX [Concomitant]
  5. NEXIUM [Concomitant]
  6. AMLODIPINE [Concomitant]
  7. PERCOCET [Concomitant]
  8. VITAMIN C [Concomitant]
  9. OMEGA 3 FATTY ACID [Concomitant]

REACTIONS (5)
  - CEREBRAL HAEMORRHAGE [None]
  - HAEMORRHAGE INTRACRANIAL [None]
  - HEMIPARESIS [None]
  - LETHARGY [None]
  - PLATELET COUNT DECREASED [None]
